FAERS Safety Report 7201695-X (Version None)
Quarter: 2010Q4

REPORT INFORMATION
  Report Type: 
  Country: None (occurrence: None)
  Receive Date: 20101229
  Receipt Date: 20101217
  Transmission Date: 20110411
  Serious: Yes (Hospitalization)
  Sender: FDA-Public Use
  Company Number: SE-ROCHE-743868

PATIENT
  Sex: Male
  Weight: 68 kg

DRUGS (6)
  1. BEVACIZUMAB [Suspect]
     Indication: NON-SMALL CELL LUNG CANCER
     Route: 042
     Dates: start: 20101027
  2. PEMETREXED [Suspect]
     Indication: NON-SMALL CELL LUNG CANCER
     Route: 042
     Dates: start: 20101027
  3. CISPLATIN [Suspect]
     Indication: NON-SMALL CELL LUNG CANCER
     Route: 042
     Dates: start: 20101027
  4. FOLIC ACID [Concomitant]
     Dates: start: 20101019
  5. VITAMIN B-12 [Concomitant]
     Dates: start: 20101019
  6. DEXAMETHASONE [Concomitant]
     Dates: start: 20101026

REACTIONS (1)
  - TRANSIENT GLOBAL AMNESIA [None]
